FAERS Safety Report 22309997 (Version 1)
Quarter: 2023Q2

REPORT INFORMATION
  Report Type: Spontaneous
  Country: US (occurrence: None)
  Receive Date: 20230510
  Receipt Date: 20230510
  Transmission Date: 20230722
  Serious: Yes (Hospitalization, Disabling)
  Sender: FDA-Public Use
  Company Number: None

PATIENT
  Age: 29 Year
  Sex: Female
  Weight: 47.25 kg

DRUGS (2)
  1. FINASTERIDE [Suspect]
     Active Substance: FINASTERIDE
     Indication: Alopecia
     Dosage: FREQUENCY : DAILY;?
     Route: 048
  2. DUTASTERIDE [Suspect]
     Active Substance: DUTASTERIDE
     Indication: Alopecia
     Dosage: FREQUENCY : DAILY;?
     Route: 048

REACTIONS (11)
  - Skin atrophy [None]
  - Pain of skin [None]
  - Lipoedema [None]
  - Lymphoedema [None]
  - Gingival recession [None]
  - Refraction disorder [None]
  - Breast enlargement [None]
  - Muscle twitching [None]
  - Increased tendency to bruise [None]
  - Skin fragility [None]
  - Skin discolouration [None]

NARRATIVE: CASE EVENT DATE: 20230201
